FAERS Safety Report 21928781 (Version 1)
Quarter: 2023Q1

REPORT INFORMATION
  Report Type: Report from Study
  Country: US (occurrence: US)
  Receive Date: 20230131
  Receipt Date: 20230131
  Transmission Date: 20230418
  Serious: No
  Sender: FDA-Public Use
  Company Number: US-ACADIA PHARMACEUTICALS INC.-ACA-2023-PIM-000101

PATIENT
  Age: 80 Year
  Sex: Female

DRUGS (7)
  1. NUPLAZID [Suspect]
     Active Substance: PIMAVANSERIN TARTRATE
     Indication: Delusion
     Dosage: 34 MILLIGRAM, QD
     Route: 048
     Dates: start: 20220725
  2. NUPLAZID [Suspect]
     Active Substance: PIMAVANSERIN TARTRATE
     Indication: Affective disorder
  3. AMLODIPINE [Concomitant]
     Active Substance: AMLODIPINE BESYLATE
  4. CARVEDILOL [Concomitant]
     Active Substance: CARVEDILOL
  5. DONEPEZIL [Concomitant]
     Active Substance: DONEPEZIL
  6. SEROQUEL [Concomitant]
     Active Substance: QUETIAPINE FUMARATE
  7. OMEPRAZOLE [Concomitant]
     Active Substance: OMEPRAZOLE

REACTIONS (3)
  - Dizziness [Recovered/Resolved]
  - Fall [Recovered/Resolved]
  - Off label use [Not Recovered/Not Resolved]

NARRATIVE: CASE EVENT DATE: 20220725
